FAERS Safety Report 9153930 (Version 1)
Quarter: 2013Q1

REPORT INFORMATION
  Report Type: Spontaneous
  Country: US (occurrence: None)
  Receive Date: 20130308
  Receipt Date: 20130308
  Transmission Date: 20140127
  Serious: No
  Sender: FDA-Public Use
  Company Number: None

PATIENT
  Age: 12 Year
  Sex: Male
  Weight: 41.73 kg

DRUGS (1)
  1. WET ONES ANTIBACTERIAL HAND 40 COUNT [Suspect]
     Dates: start: 20130307, end: 20130307

REACTIONS (2)
  - Limb injury [None]
  - Cyanosis [None]
